FAERS Safety Report 17575860 (Version 1)
Quarter: 2020Q1

REPORT INFORMATION
  Report Type: Spontaneous
  Country: FR (occurrence: FR)
  Receive Date: 20200324
  Receipt Date: 20200324
  Transmission Date: 20200409
  Serious: Yes (Hospitalization)
  Sender: FDA-Public Use
  Company Number: NVSC2020FR077000

PATIENT
  Age: 38 Year
  Sex: Male

DRUGS (2)
  1. LEVOFLOXACINE SANDOZ 250 MG FILMOMHULDE TABLETTEN [Suspect]
     Active Substance: LEVOFLOXACIN
     Indication: DEVICE RELATED INFECTION
     Dosage: 1000 MG, QD
     Route: 048
     Dates: start: 20190918, end: 20191030
  2. DALACINE [Concomitant]
     Active Substance: CLINDAMYCIN
     Indication: DEVICE RELATED INFECTION
     Route: 048
     Dates: start: 20190918, end: 20191211

REACTIONS (1)
  - Tendon disorder [Recovered/Resolved]

NARRATIVE: CASE EVENT DATE: 20191020
